FAERS Safety Report 10279466 (Version 1)
Quarter: 2014Q3

REPORT INFORMATION
  Report Type: Spontaneous
  Country: US (occurrence: None)
  Receive Date: 20140702
  Receipt Date: 20140702
  Transmission Date: 20150326
  Serious: Yes (Death)
  Sender: FDA-Public Use
  Company Number: None

PATIENT
  Age: 54 Year
  Sex: Female
  Weight: 58.6 kg

DRUGS (1)
  1. THALOMID [Suspect]
     Active Substance: THALIDOMIDE
     Indication: BRAIN NEOPLASM MALIGNANT
     Dosage: THALOMID 150 MG 2 CAPS DAILY ORAL
     Route: 048
     Dates: start: 20140205, end: 20140305

REACTIONS (2)
  - Neutropenia [None]
  - Pneumonia aspiration [None]

NARRATIVE: CASE EVENT DATE: 20140505
